FAERS Safety Report 26066962 (Version 2)
Quarter: 2025Q4

REPORT INFORMATION
  Report Type: Report from Study
  Country: CA (occurrence: CA)
  Receive Date: 20251119
  Receipt Date: 20251221
  Transmission Date: 20260118
  Serious: Yes (Hospitalization)
  Sender: JOHNSON AND JOHNSON
  Company Number: CA-JNJFOC-20240914660

PATIENT
  Age: 15 Year
  Sex: Female
  Weight: 45 kg

DRUGS (7)
  1. REMICADE [Suspect]
     Active Substance: INFLIXIMAB
     Indication: Colitis ulcerative
     Route: 041
     Dates: start: 20250626
  2. REMICADE [Suspect]
     Active Substance: INFLIXIMAB
     Route: 041
  3. REMICADE [Suspect]
     Active Substance: INFLIXIMAB
     Route: 041
  4. REMICADE [Suspect]
     Active Substance: INFLIXIMAB
     Route: 041
  5. REMICADE [Suspect]
     Active Substance: INFLIXIMAB
     Route: 041
  6. REMICADE [Suspect]
     Active Substance: INFLIXIMAB
     Route: 041
  7. REMICADE [Suspect]
     Active Substance: INFLIXIMAB
     Route: 041

REACTIONS (6)
  - Colitis ulcerative [Recovering/Resolving]
  - Eye inflammation [Unknown]
  - Psoriasis [Not Recovered/Not Resolved]
  - General physical health deterioration [Unknown]
  - Drug ineffective [Unknown]
  - Off label use [Unknown]

NARRATIVE: CASE EVENT DATE: 20250625
